FAERS Safety Report 6880268-2 (Version None)
Quarter: 2010Q3

REPORT INFORMATION
  Report Type: 
  Country: None (occurrence: None)
  Receive Date: 20100728
  Receipt Date: 20100720
  Transmission Date: 20110219
  Serious: Yes (Hospitalization)
  Sender: FDA-Public Use
  Company Number: DK-NOVOPROD-311701

PATIENT
  Age: 49 Year
  Sex: Male
  Weight: 151 kg

DRUGS (8)
  1. VICTOZA [Suspect]
     Indication: DIABETES MELLITUS
     Dosage: 0.6 MG TWICE DAILY
     Dates: start: 20100604, end: 20100707
  2. SITAGLIPTIN [Concomitant]
     Indication: DIABETES MELLITUS
     Dosage: 100 MG/ORAL ONCE DAILY
     Dates: start: 20070301, end: 20100611
  3. INSULATARD [Concomitant]
     Indication: DIABETES MELLITUS
     Dosage: 60 IU/SC
     Dates: start: 20100512
  4. ACETYLSALICYLIC ACID SRT [Concomitant]
     Indication: ANTICOAGULANT THERAPY
     Dosage: 75 MG/ORAL
     Route: 048
     Dates: start: 20060510, end: 20100714
  5. SIMVASTATIN [Concomitant]
     Indication: HYPERCHOLESTEROLAEMIA
     Dosage: 40 MG/ORAL
     Route: 048
     Dates: start: 20100714
  6. METFORMIN HCL [Concomitant]
     Indication: PRODUCT USED FOR UNKNOWN INDICATION
     Dosage: 2 G/ORAL
     Route: 048
     Dates: start: 20070514
  7. TELMISARTAN [Concomitant]
     Indication: HYPERTENSION
     Dosage: 80 MG/ORAL
     Route: 048
     Dates: start: 20080801
  8. CALCIUM [Concomitant]
     Indication: MINERAL SUPPLEMENTATION
     Dosage: ORAL
     Route: 048
     Dates: start: 20100707

REACTIONS (2)
  - ACUTE ABDOMEN [None]
  - DRUG INTERACTION [None]
